FAERS Safety Report 12707095 (Version 3)
Quarter: 2016Q4

REPORT INFORMATION
  Report Type: Spontaneous
  Country: US (occurrence: US)
  Receive Date: 20160901
  Receipt Date: 20161207
  Transmission Date: 20170207
  Serious: No
  Sender: FDA-Public Use
  Company Number: US-009507513-1608USA012084

PATIENT
  Sex: Female

DRUGS (1)
  1. IMPLANON [Suspect]
     Active Substance: ETONOGESTREL
     Indication: CONTRACEPTION
     Dosage: STRENGTH: 68 (UNIT NOT PROVIDED); 1 DF, UNK
     Route: 059
     Dates: start: 201304

REACTIONS (4)
  - Incorrect drug administration duration [Unknown]
  - Weight increased [Unknown]
  - Migration of implanted drug [Recovered/Resolved]
  - Complication associated with device [Recovered/Resolved]

NARRATIVE: CASE EVENT DATE: 201604
